FAERS Safety Report 4347242-1 (Version None)
Quarter: 2004Q1

REPORT INFORMATION
  Report Type: 
  Country: None (occurrence: None)
  Receive Date: 20040325
  Receipt Date: 20031224
  Transmission Date: 20041129
  Serious: No
  Sender: FDA-Public Use
  Company Number: USA031255382

PATIENT
  Age: 82 Year
  Sex: Female
  Weight: 64 kg

DRUGS (5)
  1. FORTEO [Suspect]
     Indication: OSTEOPOROSIS
     Dates: start: 20031201
  2. AMBIEN [Concomitant]
  3. SINEQUAN [Concomitant]
  4. SYNTHROID [Concomitant]
  5. ALLEGRA-D [Concomitant]

REACTIONS (1)
  - INJECTION SITE ERYTHEMA [None]
